FAERS Safety Report 4695899-8 (Version None)
Quarter: 2005Q2

REPORT INFORMATION
  Report Type: 
  Country: None (occurrence: None)
  Receive Date: 20050621
  Receipt Date: 20050614
  Transmission Date: 20051028
  Serious: Yes (Death)
  Sender: FDA-Public Use
  Company Number: 200515369GDDC

PATIENT
  Sex: Female

DRUGS (1)
  1. NICODERM [Suspect]
     Route: 062
     Dates: start: 20040101, end: 20040101

REACTIONS (2)
  - INTENTIONAL MISUSE [None]
  - MYOCARDIAL INFARCTION [None]
